FAERS Safety Report 20514346 (Version 1)
Quarter: 2022Q1

REPORT INFORMATION
  Report Type: Spontaneous
  Country: US (occurrence: US)
  Receive Date: 20220224
  Receipt Date: 20220224
  Transmission Date: 20220424
  Serious: No
  Sender: FDA-Public Use
  Company Number: US-VYERA PHARMACEUTICALS, LLC-2021VYE00012

PATIENT
  Age: 50 Year
  Sex: Female
  Weight: 79.379 kg

DRUGS (6)
  1. DARAPRIM [Suspect]
     Active Substance: PYRIMETHAMINE
     Dosage: 25 MG, 2X/DAY
     Route: 048
     Dates: start: 20210423, end: 20210426
  2. DARAPRIM [Suspect]
     Active Substance: PYRIMETHAMINE
     Dosage: 50 MG WITH BREAKFAST
     Route: 048
     Dates: start: 20210427, end: 202105
  3. DARAPRIM [Suspect]
     Active Substance: PYRIMETHAMINE
     Dosage: MWF, 3 TIMES A WEEK
     Route: 048
     Dates: start: 202105
  4. BACTRIM [Suspect]
     Active Substance: SULFAMETHOXAZOLE\TRIMETHOPRIM
     Dosage: UNK
     Dates: start: 202105, end: 202105
  5. LEUCOVORIN [Concomitant]
     Active Substance: LEUCOVORIN
  6. FLUCONAZOLE [Concomitant]
     Active Substance: FLUCONAZOLE

REACTIONS (4)
  - Insomnia [Unknown]
  - Nausea [Unknown]
  - Dizziness [Unknown]
  - Off label use [Not Recovered/Not Resolved]

NARRATIVE: CASE EVENT DATE: 20210424
